FAERS Safety Report 24451400 (Version 1)
Quarter: 2024Q4

REPORT INFORMATION
  Report Type: Spontaneous
  Country: NL (occurrence: NL)
  Receive Date: 20241017
  Receipt Date: 20241017
  Transmission Date: 20250115
  Serious: Yes (Hospitalization)
  Sender: JOHNSON AND JOHNSON
  Company Number: NL-JNJFOC-20241033201

PATIENT
  Sex: Female

DRUGS (1)
  1. DARZALEX [Suspect]
     Active Substance: DARATUMUMAB
     Indication: Aplasia pure red cell
     Route: 065

REACTIONS (3)
  - Cardiac failure [Unknown]
  - Dehydration [Unknown]
  - Off label use [Unknown]
